FAERS Safety Report 18973159 (Version 3)
Quarter: 2024Q3

REPORT INFORMATION
  Report Type: Spontaneous
  Country: US (occurrence: US)
  Receive Date: 20210305
  Receipt Date: 20240815
  Transmission Date: 20241016
  Serious: No
  Sender: VIIV
  Company Number: US-VIIV HEALTHCARE LIMITED-US2021AMR054889

PATIENT
  Age: 55 Year
  Sex: Male

DRUGS (4)
  1. CABENUVA [Suspect]
     Active Substance: CABOTEGRAVIR\RILPIVIRINE
     Indication: HIV infection
     Dosage: UNK UNK, Q2M EVERY OTHER MONTH
     Route: 030
     Dates: start: 201707
  2. CABENUVA [Suspect]
     Active Substance: CABOTEGRAVIR\RILPIVIRINE
  3. CABENUVA [Suspect]
     Active Substance: CABOTEGRAVIR\RILPIVIRINE
  4. JULUCA [Suspect]
     Active Substance: DOLUTEGRAVIR SODIUM\RILPIVIRINE HYDROCHLORIDE
     Indication: HIV infection
     Dosage: UNK
     Dates: start: 20230620, end: 2023

REACTIONS (2)
  - Weight decreased [Not Recovered/Not Resolved]
  - Body mass index abnormal [Not Recovered/Not Resolved]

NARRATIVE: CASE EVENT DATE: 20210101
